FAERS Safety Report 12778336 (Version 1)
Quarter: 2016Q3

REPORT INFORMATION
  Report Type: Spontaneous
  Country: US (occurrence: US)
  Receive Date: 20160926
  Receipt Date: 20160926
  Transmission Date: 20161109
  Serious: Yes (Hospitalization)
  Sender: FDA-Public Use
  Company Number: US-JNJFOC-20160916198

PATIENT
  Age: 51 Year
  Sex: Female
  Weight: 67.1 kg

DRUGS (29)
  1. PRINIVIL [Concomitant]
     Active Substance: LISINOPRIL
     Indication: MINERAL SUPPLEMENTATION
     Route: 065
     Dates: start: 2010
  2. LYRICA [Concomitant]
     Active Substance: PREGABALIN
     Indication: HYPERCHOLESTEROLAEMIA
     Route: 065
     Dates: start: 2010
  3. PRAZOSIN [Concomitant]
     Active Substance: PRAZOSIN
     Indication: POST-TRAUMATIC STRESS DISORDER
     Route: 065
     Dates: start: 2011
  4. BENTYL [Concomitant]
     Active Substance: DICYCLOMINE HYDROCHLORIDE
     Indication: IRRITABLE BOWEL SYNDROME
     Route: 065
     Dates: start: 2008
  5. TRILIPIX [Concomitant]
     Active Substance: FENOFIBRIC ACID
     Indication: HYPERCHOLESTEROLAEMIA
     Route: 065
     Dates: start: 2010
  6. IBUPROFEN. [Suspect]
     Active Substance: IBUPROFEN
     Indication: OSTEOARTHRITIS
     Route: 065
     Dates: start: 20121213, end: 20130911
  7. CRESTOR [Concomitant]
     Active Substance: ROSUVASTATIN CALCIUM
     Indication: HYPERCHOLESTEROLAEMIA
     Route: 065
     Dates: start: 2011
  8. CYMBALTA [Concomitant]
     Active Substance: DULOXETINE HYDROCHLORIDE
     Indication: BIPOLAR DISORDER
     Route: 065
     Dates: start: 20130103
  9. SYNTHROID [Concomitant]
     Active Substance: LEVOTHYROXINE SODIUM
     Indication: HYPOTHYROIDISM
     Route: 065
     Dates: start: 2006
  10. SINGULAIR [Concomitant]
     Active Substance: MONTELUKAST SODIUM
     Indication: ASTHMA
     Route: 065
     Dates: start: 2002
  11. HUMALOG [Concomitant]
     Active Substance: INSULIN LISPRO
     Indication: TYPE 2 DIABETES MELLITUS
     Route: 065
     Dates: start: 2008
  12. BYETTA [Concomitant]
     Active Substance: EXENATIDE
     Indication: TYPE 2 DIABETES MELLITUS
     Route: 065
     Dates: start: 2008
  13. FLONASE [Concomitant]
     Active Substance: FLUTICASONE PROPIONATE
     Indication: SINUSITIS
     Route: 065
     Dates: start: 2008
  14. ALENDRONATE [Concomitant]
     Active Substance: ALENDRONATE SODIUM
     Indication: OSTEOPOROSIS
     Route: 065
     Dates: start: 2002
  15. PROAIR HFA [Concomitant]
     Active Substance: ALBUTEROL SULFATE
     Indication: ASTHMA
     Route: 065
     Dates: start: 2008
  16. AMBIEN [Concomitant]
     Active Substance: ZOLPIDEM TARTRATE
     Indication: INSOMNIA
     Route: 065
     Dates: start: 2009
  17. CLARITIN [Concomitant]
     Active Substance: LORATADINE
     Indication: SEASONAL ALLERGY
     Route: 065
     Dates: start: 2008
  18. NAPROXEN. [Suspect]
     Active Substance: NAPROXEN
     Indication: OSTEOARTHRITIS
     Route: 065
     Dates: start: 20121213, end: 20130911
  19. TOPAMAX [Concomitant]
     Active Substance: TOPIRAMATE
     Indication: MIGRAINE
     Route: 065
     Dates: start: 2011
  20. NEXIUM [Concomitant]
     Active Substance: ESOMEPRAZOLE MAGNESIUM
     Indication: GASTROINTESTINAL DISORDER THERAPY
     Route: 065
     Dates: start: 20130706
  21. ASPIRIN. [Concomitant]
     Active Substance: ASPIRIN
     Indication: CARDIAC DISORDER
     Route: 065
     Dates: start: 2008
  22. IBUPROFEN. [Suspect]
     Active Substance: IBUPROFEN
     Indication: RHEUMATOID ARTHRITIS
     Route: 065
     Dates: start: 20121213, end: 20130911
  23. CELEBREX [Suspect]
     Active Substance: CELECOXIB
     Indication: OSTEOARTHRITIS
     Route: 065
     Dates: start: 20121213, end: 20130911
  24. GLUCAGON. [Concomitant]
     Active Substance: GLUCAGON
     Indication: TYPE 2 DIABETES MELLITUS
     Route: 065
     Dates: start: 2008
  25. FENTANYL. [Suspect]
     Active Substance: FENTANYL
     Indication: ARTHRALGIA
     Route: 062
     Dates: start: 2011, end: 20130822
  26. FISH OIL [Concomitant]
     Active Substance: FISH OIL
     Indication: HYPERCHOLESTEROLAEMIA
     Route: 065
     Dates: start: 2008
  27. FLORINEF ACETATE [Concomitant]
     Active Substance: FLUDROCORTISONE ACETATE
     Indication: HYPOTENSION
     Route: 065
     Dates: start: 2010
  28. LYRICA [Concomitant]
     Active Substance: PREGABALIN
     Indication: DIABETIC NEUROPATHY
     Route: 065
     Dates: start: 2010
  29. ABILIFY [Concomitant]
     Active Substance: ARIPIPRAZOLE
     Indication: BIPOLAR DISORDER
     Route: 065
     Dates: start: 2010

REACTIONS (1)
  - Mental status changes [Recovered/Resolved]

NARRATIVE: CASE EVENT DATE: 20130822
